FAERS Safety Report 22612443 (Version 1)
Quarter: 2023Q2

REPORT INFORMATION
  Report Type: Spontaneous
  Country: US (occurrence: US)
  Receive Date: 20230617
  Receipt Date: 20230617
  Transmission Date: 20230721
  Serious: Yes (Other)
  Sender: FDA-Public Use
  Company Number: US-AUROBINDO-AUR-APL-2023-041758

PATIENT
  Age: 15 Year
  Sex: Male

DRUGS (1)
  1. FUROSEMIDE [Suspect]
     Active Substance: FUROSEMIDE
     Indication: Hyperkalaemia
     Dosage: 80 MILLIGRAM, ABOUT 0.8 MG/KG OF ACTUAL BODY WEIGHT
     Route: 065

REACTIONS (1)
  - Drug ineffective [Unknown]
